FAERS Safety Report 19820956 (Version 1)
Quarter: 2021Q3

REPORT INFORMATION
  Report Type: Spontaneous
  Country: US (occurrence: US)
  Receive Date: 20210909
  Receipt Date: 20210909
  Transmission Date: 20211014
  Serious: Yes (Hospitalization)
  Sender: FDA-Public Use
  Company Number: None

PATIENT
  Age: 56 Year
  Sex: Female
  Weight: 112.94 kg

DRUGS (34)
  1. DAPSONE. [Concomitant]
     Active Substance: DAPSONE
  2. LANTUS [Concomitant]
     Active Substance: INSULIN GLARGINE
  3. MAGOX [Concomitant]
  4. TRAMADOL. [Concomitant]
     Active Substance: TRAMADOL
  5. VITAMIN B [Concomitant]
     Active Substance: VITAMIN B
  6. NITROGLYCERIN. [Concomitant]
     Active Substance: NITROGLYCERIN
  7. POLYATHYLENE GLYCOL [Concomitant]
  8. ZOFRAN [Concomitant]
     Active Substance: ONDANSETRON HYDROCHLORIDE
  9. CINACALCET. [Concomitant]
     Active Substance: CINACALCET
  10. MAVYRET [Suspect]
     Active Substance: GLECAPREVIR\PIBRENTASVIR
     Indication: HEPATITIS C
     Route: 048
     Dates: start: 20200415, end: 20200710
  11. ACETAMINOPHEN. [Concomitant]
     Active Substance: ACETAMINOPHEN
  12. KLONOPIN [Concomitant]
     Active Substance: CLONAZEPAM
  13. PYRIDOXINE [Concomitant]
     Active Substance: PYRIDOXINE
  14. ATORVASTATIN [Concomitant]
     Active Substance: ATORVASTATIN
  15. METOCLOPRAMIDE. [Concomitant]
     Active Substance: METOCLOPRAMIDE
  16. VALGANCICLOVIR. [Concomitant]
     Active Substance: VALGANCICLOVIR
  17. FAMOTIDINE. [Concomitant]
     Active Substance: FAMOTIDINE
  18. PLAQUENIL [Concomitant]
     Active Substance: HYDROXYCHLOROQUINE SULFATE
  19. PRILOSEC [Concomitant]
     Active Substance: OMEPRAZOLE MAGNESIUM
  20. LYRICA [Concomitant]
     Active Substance: PREGABALIN
  21. PROGRAF [Concomitant]
     Active Substance: TACROLIMUS
  22. FUROSEMIDE. [Concomitant]
     Active Substance: FUROSEMIDE
  23. VITAMIN D3 [Concomitant]
     Active Substance: CHOLECALCIFEROL
  24. PREVASTARIN [Concomitant]
  25. SEVELAMER [Concomitant]
     Active Substance: SEVELAMER
  26. XANAX [Concomitant]
     Active Substance: ALPRAZOLAM
  27. NORVASC [Concomitant]
     Active Substance: AMLODIPINE BESYLATE
  28. ASPIRIN. [Concomitant]
     Active Substance: ASPIRIN
  29. CARVEDILOL. [Concomitant]
     Active Substance: CARVEDILOL
  30. COLACE [Concomitant]
     Active Substance: DOCUSATE SODIUM
  31. NORCO [Concomitant]
     Active Substance: ACETAMINOPHEN\HYDROCODONE BITARTRATE
  32. PROBIOTIC [Concomitant]
     Active Substance: PROBIOTICS NOS
  33. CARDENE [Concomitant]
     Active Substance: NICARDIPINE HYDROCHLORIDE
  34. BASAGLAR [Concomitant]
     Active Substance: INSULIN GLARGINE

REACTIONS (9)
  - Hypotension [None]
  - Pyrexia [None]
  - Klebsiella infection [None]
  - Fatigue [None]
  - Myalgia [None]
  - Culture urine positive [None]
  - Headache [None]
  - Dizziness [None]
  - Tachycardia [None]

NARRATIVE: CASE EVENT DATE: 20200628
